FAERS Safety Report 9214842 (Version 1)
Quarter: 2013Q2

REPORT INFORMATION
  Report Type: Spontaneous
  Country: US (occurrence: US)
  Receive Date: 20130405
  Receipt Date: 20130405
  Transmission Date: 20140414
  Serious: Yes (Death)
  Sender: FDA-Public Use
  Company Number: CHPA2013US005923

PATIENT
  Sex: Male

DRUGS (2)
  1. MAALOX UNKNOWN [Suspect]
     Indication: ULCER
     Dosage: 1 TSP, UNK
     Route: 048
  2. MAALOX UNKNOWN [Suspect]
     Indication: IRRITABLE BOWEL SYNDROME

REACTIONS (4)
  - Death [Fatal]
  - Off label use [Unknown]
  - Underdose [Unknown]
  - Wrong technique in drug usage process [Unknown]
